FAERS Safety Report 21668242 (Version 3)
Quarter: 2022Q4

REPORT INFORMATION
  Report Type: Report from Study
  Country: KR (occurrence: KR)
  Receive Date: 20221201
  Receipt Date: 20221222
  Transmission Date: 20230113
  Serious: Yes (Life-Threatening)
  Sender: FDA-Public Use
  Company Number: KR-AstraZeneca-2022-60106

PATIENT
  Age: 57 Year
  Sex: Female

DRUGS (29)
  1. FAM-TRASTUZUMAB DERUXTECAN-NXKI [Suspect]
     Active Substance: FAM-TRASTUZUMAB DERUXTECAN-NXKI
     Indication: Ovarian cancer
     Dosage: 5.4 MG/KG, ONCE EVERY 3 WK
     Route: 042
     Dates: start: 20210330, end: 20210330
  2. FAM-TRASTUZUMAB DERUXTECAN-NXKI [Suspect]
     Active Substance: FAM-TRASTUZUMAB DERUXTECAN-NXKI
     Dosage: 5.4 MG/KG, ONCE EVERY 3 WK
     Route: 042
     Dates: start: 20210420, end: 20210420
  3. FAM-TRASTUZUMAB DERUXTECAN-NXKI [Suspect]
     Active Substance: FAM-TRASTUZUMAB DERUXTECAN-NXKI
     Dosage: 5.4 MG/KG, ONCE EVERY 3 WK
     Route: 042
     Dates: start: 20210511, end: 20210511
  4. FAM-TRASTUZUMAB DERUXTECAN-NXKI [Suspect]
     Active Substance: FAM-TRASTUZUMAB DERUXTECAN-NXKI
     Dosage: 5.4 MG/KG, ONCE EVERY 3 WK
     Route: 042
     Dates: start: 20210601, end: 20210601
  5. FAM-TRASTUZUMAB DERUXTECAN-NXKI [Suspect]
     Active Substance: FAM-TRASTUZUMAB DERUXTECAN-NXKI
     Dosage: 4.4 MG/KG, ONCE EVERY 3 WK
     Route: 042
     Dates: start: 20210622, end: 20210622
  6. AKYNZEO (NETUPITANT\PALONOSETRON) [Concomitant]
     Active Substance: NETUPITANT\PALONOSETRON
     Indication: Premedication
     Dosage: 1 DF
     Route: 048
     Dates: start: 20210511, end: 20210511
  7. AKYNZEO (NETUPITANT\PALONOSETRON) [Concomitant]
     Active Substance: NETUPITANT\PALONOSETRON
     Dosage: 1 DF
     Route: 048
     Dates: start: 20210601, end: 20210601
  8. NEXIUM [Concomitant]
     Active Substance: ESOMEPRAZOLE MAGNESIUM
     Indication: Dyspepsia
     Dosage: 20 MG, QD
     Route: 048
     Dates: start: 20210413, end: 20210510
  9. NEXIUM [Concomitant]
     Active Substance: ESOMEPRAZOLE MAGNESIUM
     Indication: Prophylaxis
     Dosage: 20 MG, QD
     Route: 048
     Dates: start: 20210518, end: 20210712
  10. FERROUS SULFATE\PROTEASE [Concomitant]
     Active Substance: FERROUS SULFATE\PROTEASE
     Indication: Anaemia
     Dosage: 256 MG, QD
     Route: 048
     Dates: start: 20210413
  11. PENIRAMIN [Concomitant]
     Indication: Hypersensitivity vasculitis
     Dosage: 4 MG
     Route: 042
     Dates: start: 20210509, end: 20210509
  12. PENIRAMIN [Concomitant]
     Dosage: 4 MG, BID
     Route: 042
     Dates: start: 20210608, end: 20210608
  13. DIFUCO [Concomitant]
     Indication: Hypersensitivity vasculitis
     Dosage: 30.0 ONIT  DAILY
     Route: 061
     Dates: start: 20210318, end: 20210510
  14. METHYLPREDNISOLONE ACEPONATE [Concomitant]
     Active Substance: METHYLPREDNISOLONE ACEPONATE
     Indication: Hypersensitivity vasculitis
     Dosage: 15 DF, QD
     Route: 061
     Dates: start: 20210318, end: 20210510
  15. VENITOL [Concomitant]
     Indication: Lymphoedema
     Dosage: 500 MG, BID
     Route: 048
     Dates: start: 20210413
  16. BOSOMI [Concomitant]
     Indication: Hypersensitivity vasculitis
     Dosage: 20 G, QD
     Route: 061
     Dates: start: 20210511, end: 20210712
  17. PREDNISOLONE VALERATE ACETATE [Concomitant]
     Active Substance: PREDNISOLONE VALERATE ACETATE
     Indication: Hypersensitivity vasculitis
     Dosage: 20 G, QD
     Route: 061
     Dates: start: 20210511, end: 20210524
  18. P VIDINE [Concomitant]
     Indication: Prophylaxis
     Dosage: 360 ML, QD
     Route: 061
     Dates: start: 20210511, end: 20210531
  19. FAMOTIDINE [Concomitant]
     Active Substance: FAMOTIDINE
     Indication: Prophylaxis
     Dosage: 20 MG, BID
     Route: 048
     Dates: start: 20210511, end: 20210517
  20. FAMOTIDINE [Concomitant]
     Active Substance: FAMOTIDINE
     Indication: Dyspepsia
  21. ALMAGATE [Concomitant]
     Active Substance: ALMAGATE
     Indication: Prophylaxis
     Dosage: 15 ML, TID
     Route: 048
     Dates: start: 20210511, end: 20210517
  22. ALMAGATE [Concomitant]
     Active Substance: ALMAGATE
     Indication: Dyspepsia
  23. NORZYME [Concomitant]
     Indication: Dyspepsia
     Dosage: 458 MG, TID
     Route: 048
     Dates: start: 20210518, end: 20210531
  24. PHAZYME [PANCREATIN;SIMETICONE] [Concomitant]
     Indication: Dyspepsia
     Dosage: 1 DF, TID
     Route: 048
     Dates: start: 20210601, end: 20210712
  25. TYLENOL [Concomitant]
     Active Substance: ACETAMINOPHEN
     Indication: Pyrexia
     Dosage: 1300 MG
     Route: 048
     Dates: start: 20210608, end: 20210608
  26. PROTOPIC [Concomitant]
     Active Substance: TACROLIMUS
     Indication: Hypersensitivity vasculitis
     Dosage: 10 G, QD
     Route: 061
     Dates: start: 20210525
  27. LEVOPLUS [LEVOFLOXACIN] [Concomitant]
     Indication: Infection
     Dosage: 750 MG, QD
     Route: 048
     Dates: start: 20210522, end: 20210529
  28. AMPICILLIN TRIHYDRATE;PROBENECID [Concomitant]
     Indication: Anaemia
     Dosage: 1.0 PCK  ONCE/SINGLE ADMINISTRATION
     Route: 042
     Dates: start: 20210608, end: 20210608
  29. HUMAN RHO(D) IMMUNE GLOBULIN [Concomitant]
     Active Substance: HUMAN RHO(D) IMMUNE GLOBULIN
     Indication: Platelet count decreased
     Dosage: 6.0 UNIT  ONCE/SINGLE ADMINISTRATION
     Route: 042
     Dates: start: 20210608, end: 20210608

REACTIONS (1)
  - Platelet count decreased [Not Recovered/Not Resolved]

NARRATIVE: CASE EVENT DATE: 20210406
